FAERS Safety Report 20688330 (Version 2)
Quarter: 2022Q2

REPORT INFORMATION
  Report Type: Spontaneous
  Country: US (occurrence: US)
  Receive Date: 20220408
  Receipt Date: 20220412
  Transmission Date: 20220721
  Serious: Yes (Life-Threatening, Hospitalization, Other)
  Sender: FDA-Public Use
  Company Number: US-SA-2022SA114321

PATIENT
  Age: 28 Year
  Sex: Male

DRUGS (3)
  1. ASPIRIN [Suspect]
     Active Substance: ASPIRIN
     Indication: Dysmenorrhoea
     Dosage: UNK
  2. ASPIRIN [Suspect]
     Active Substance: ASPIRIN
     Indication: Coronary artery stenosis
  3. CLOPIDOGREL BISULFATE [Suspect]
     Active Substance: CLOPIDOGREL BISULFATE
     Indication: Coronary artery stenosis
     Dosage: UNK

REACTIONS (4)
  - Arteriospasm coronary [Recovered/Resolved]
  - Eosinophilia [Recovered/Resolved]
  - Chest pain [Recovered/Resolved]
  - Ventricular arrhythmia [Recovered/Resolved]
